FAERS Safety Report 13243412 (Version 1)
Quarter: 2017Q1

REPORT INFORMATION
  Report Type: Spontaneous
  Country: US (occurrence: US)
  Receive Date: 20170216
  Receipt Date: 20170216
  Transmission Date: 20170428
  Serious: No
  Sender: FDA-Public Use
  Company Number: US-ALLERGAN-1681596US

PATIENT
  Sex: Female
  Weight: 72.56 kg

DRUGS (1)
  1. KYBELLA [Suspect]
     Active Substance: DEOXYCHOLIC ACID
     Indication: FAT TISSUE INCREASED
     Dosage: 2.2 ML, SINGLE
     Route: 058
     Dates: start: 20160715, end: 20160715

REACTIONS (1)
  - Post inflammatory pigmentation change [Not Recovered/Not Resolved]
